FAERS Safety Report 6490784-3 (Version None)
Quarter: 2009Q4

REPORT INFORMATION
  Report Type: 
  Country: None (occurrence: None)
  Receive Date: 20091211
  Receipt Date: 20091203
  Transmission Date: 20100525
  Serious: Yes (Other)
  Sender: FDA-Public Use
  Company Number: DK-SANOFI-AVENTIS-A01200909309

PATIENT
  Age: 23 Year
  Sex: Male
  Weight: 60 kg

DRUGS (4)
  1. ZOLPIDEM TARTRATE [Suspect]
     Dosage: UNIT DOSE: 10 MG
     Route: 048
     Dates: start: 20090618, end: 20090619
  2. CIPRALEX /DEN/ [Concomitant]
     Indication: DEPRESSION
     Route: 048
     Dates: start: 20080730
  3. MIRTAZAPINE [Concomitant]
     Indication: DEPRESSION
     Route: 048
     Dates: start: 20080819
  4. LAMOTRIGINE [Concomitant]
     Indication: DEPRESSION
     Route: 065
     Dates: start: 20080923

REACTIONS (1)
  - DELIRIUM [None]
